FAERS Safety Report 9592583 (Version 2)
Quarter: 2013Q4

REPORT INFORMATION
  Report Type: Spontaneous
  Country: US (occurrence: US)
  Receive Date: 20131004
  Receipt Date: 20131004
  Transmission Date: 20140711
  Serious: No
  Sender: FDA-Public Use
  Company Number: US-BAXTER-2013BAX005610

PATIENT
  Sex: Male

DRUGS (5)
  1. DIANEAL LOW CALCIUM [Suspect]
     Indication: RENAL FAILURE CHRONIC
     Route: 033
     Dates: start: 2012
  2. DIANEAL LOW CALCIUM [Suspect]
     Indication: PERITONEAL DIALYSIS
  3. DIANEAL LOW CALCIUM [Suspect]
     Indication: RENAL FAILURE CHRONIC
     Route: 033
     Dates: start: 2012
  4. DIANEAL LOW CALCIUM [Suspect]
     Indication: PERITONEAL DIALYSIS
  5. ALLOPURINOL [Concomitant]
     Indication: GOUT
     Route: 048

REACTIONS (10)
  - Hyperkeratosis follicularis et parafollicularis [Unknown]
  - Herpes zoster [Recovered/Resolved with Sequelae]
  - Skin odour abnormal [Unknown]
  - Immunodeficiency [Unknown]
  - Paraesthesia [Not Recovered/Not Resolved]
  - Pain in extremity [Unknown]
  - Urticaria [Not Recovered/Not Resolved]
  - Rash pruritic [Not Recovered/Not Resolved]
  - Rash [Not Recovered/Not Resolved]
  - Rash [Not Recovered/Not Resolved]
